FAERS Safety Report 19488185 (Version 6)
Quarter: 2022Q1

REPORT INFORMATION
  Report Type: Report from Study
  Country: US (occurrence: US)
  Receive Date: 20210702
  Receipt Date: 20220128
  Transmission Date: 20220423
  Serious: Yes (Hospitalization, Other)
  Sender: FDA-Public Use
  Company Number: US-TAKEDA-2021TUS038825

PATIENT
  Age: 74 Year
  Sex: Male

DRUGS (10)
  1. TEDUGLUTIDE [Suspect]
     Active Substance: TEDUGLUTIDE
     Indication: Short-bowel syndrome
     Dosage: 1.7 MILLIGRAM, 1/WEEK
     Route: 065
     Dates: start: 20200816
  2. TEDUGLUTIDE [Suspect]
     Active Substance: TEDUGLUTIDE
     Indication: Short-bowel syndrome
     Dosage: 1.7 MILLIGRAM, 1/WEEK
     Route: 065
     Dates: start: 20200816
  3. TEDUGLUTIDE [Suspect]
     Active Substance: TEDUGLUTIDE
     Indication: Short-bowel syndrome
     Dosage: 1.7 MILLIGRAM, 1/WEEK
     Route: 065
     Dates: start: 20200816
  4. TEDUGLUTIDE [Suspect]
     Active Substance: TEDUGLUTIDE
     Indication: Short-bowel syndrome
     Dosage: 1.7 MILLIGRAM, 1/WEEK
     Route: 065
     Dates: start: 20200816
  5. VORICONAZOLE [Concomitant]
     Active Substance: VORICONAZOLE
     Indication: Endophthalmitis
     Dosage: 0.1 MILLIGRAM, SINGLE
     Route: 058
     Dates: start: 20210316, end: 20210316
  6. APIXABAN [Concomitant]
     Active Substance: APIXABAN
     Indication: Atrial fibrillation
     Dosage: 5 MILLIGRAM, BID
     Route: 048
     Dates: start: 20210211
  7. NICOTINAMIDE [Concomitant]
     Active Substance: NIACINAMIDE
     Indication: Hypovitaminosis
     Dosage: 500 MILLIGRAM, BID
     Route: 048
     Dates: start: 20181008
  8. TUMS [Concomitant]
     Active Substance: CALCIUM CARBONATE
     Indication: Short-bowel syndrome
     Dosage: 500 MILLIGRAM, WITH EVERY MEAL
     Route: 048
     Dates: start: 20201028
  9. VITAMIN D3 [Concomitant]
     Active Substance: CHOLECALCIFEROL
     Indication: Hypovitaminosis
     Dosage: 3000 INTERNATIONAL UNIT, BID
     Route: 048
     Dates: start: 20210922
  10. VITAMIN D3 [Concomitant]
     Active Substance: CHOLECALCIFEROL
     Indication: Mineral deficiency

REACTIONS (18)
  - Staphylococcal infection [Recovered/Resolved with Sequelae]
  - Vascular device infection [Recovered/Resolved]
  - Hypokalaemia [Recovered/Resolved with Sequelae]
  - Hypoalbuminaemia [Recovered/Resolved with Sequelae]
  - Activated partial thromboplastin time shortened [Recovered/Resolved]
  - Sepsis [Recovered/Resolved with Sequelae]
  - Hyperbilirubinaemia [Recovered/Resolved]
  - Thrombocytopenia [Recovered/Resolved]
  - Atrial fibrillation [Recovered/Resolved with Sequelae]
  - Hypoglycaemia [Recovered/Resolved with Sequelae]
  - Aspartate aminotransferase increased [Recovered/Resolved with Sequelae]
  - Urinary tract infection [Recovered/Resolved]
  - Hypocalcaemia [Recovered/Resolved]
  - Anaemia [Recovered/Resolved]
  - Central venous catheterisation [Recovered/Resolved with Sequelae]
  - Pleural effusion [Not Recovered/Not Resolved]
  - Hypertriglyceridaemia [Not Recovered/Not Resolved]
  - Mycotic endophthalmitis [Recovered/Resolved]

NARRATIVE: CASE EVENT DATE: 20210209
